FAERS Safety Report 9522115 (Version 3)
Quarter: 2015Q2

REPORT INFORMATION
  Report Type: Spontaneous
  Country: US (occurrence: US)
  Receive Date: 20130913
  Receipt Date: 20150603
  Transmission Date: 20150821
  Serious: Yes (Hospitalization, Other)
  Sender: FDA-Public Use
  Company Number: US-BAYER-2013-110389

PATIENT
  Age: 18 Year
  Sex: Female
  Weight: 63.49 kg

DRUGS (5)
  1. MIRENA [Suspect]
     Active Substance: LEVONORGESTREL
     Indication: CONTRACEPTION
     Dosage: 20 MCG/24HR, CONT
     Route: 015
     Dates: start: 20080422, end: 20090922
  2. IBUPROFEN. [Concomitant]
     Active Substance: IBUPROFEN
     Dosage: UNK
     Dates: start: 2003
  3. PROVERA [Concomitant]
     Active Substance: MEDROXYPROGESTERONE ACETATE
  4. NUVARING [Concomitant]
     Active Substance: ETHINYL ESTRADIOL\ETONOGESTREL
  5. HYDROCODONE [Concomitant]
     Active Substance: HYDROCODONE
     Dosage: UNK
     Dates: start: 2003

REACTIONS (12)
  - Device issue [None]
  - Genital haemorrhage [None]
  - Uterine perforation [None]
  - Emotional distress [None]
  - Medical device complication [None]
  - Pain [None]
  - Medical device pain [None]
  - Depression [None]
  - Anxiety [None]
  - Injury [None]
  - Menorrhagia [None]
  - Abdominal pain lower [None]

NARRATIVE: CASE EVENT DATE: 200804
